FAERS Safety Report 7058383-2 (Version None)
Quarter: 2010Q4

REPORT INFORMATION
  Report Type: 
  Country: None (occurrence: None)
  Receive Date: 20101022
  Receipt Date: 20101007
  Transmission Date: 20110411
  Serious: No
  Sender: FDA-Public Use
  Company Number: US-PFIZER INC-2010128463

PATIENT
  Sex: Female

DRUGS (1)
  1. TOVIAZ [Suspect]
     Dosage: 8 MG, DAILY

REACTIONS (2)
  - DRUG INEFFECTIVE [None]
  - ILL-DEFINED DISORDER [None]
